FAERS Safety Report 7914679-0 (Version None)
Quarter: 2011Q4

REPORT INFORMATION
  Report Type: 
  Country: None (occurrence: None)
  Receive Date: 20111115
  Receipt Date: 20111108
  Transmission Date: 20120403
  Serious: No
  Sender: FDA-Public Use
  Company Number: PHHY2011AU63289

PATIENT
  Sex: Male

DRUGS (1)
  1. GLEEVEC [Suspect]
     Indication: CHRONIC MYELOID LEUKAEMIA
     Dosage: 700 MG,DAILY
     Dates: start: 20000101

REACTIONS (1)
  - PIGMENTATION BUCCAL [None]
